FAERS Safety Report 13433814 (Version 1)
Quarter: 2017Q2

REPORT INFORMATION
  Report Type: Report from Study
  Country: DE (occurrence: DE)
  Receive Date: 20170412
  Receipt Date: 20170412
  Transmission Date: 20170830
  Serious: Yes (Hospitalization)
  Sender: FDA-Public Use
  Company Number: DE-BAYER-2017-066321

PATIENT

DRUGS (1)
  1. ASPIRIN. [Suspect]
     Active Substance: ASPIRIN

REACTIONS (4)
  - Haemorrhagic diathesis [None]
  - Drug administration error [None]
  - Vascular access site haemorrhage [None]
  - Labelled drug-drug interaction medication error [None]
